FAERS Safety Report 4822970-X (Version None)
Quarter: 2005Q4

REPORT INFORMATION
  Report Type: 
  Country: None (occurrence: None)
  Receive Date: 20051108
  Receipt Date: 20051102
  Transmission Date: 20060501
  Serious: Yes (Other)
  Sender: FDA-Public Use
  Company Number: NL-JNJFOC-20050804983

PATIENT
  Age: 17 Day
  Sex: Female

DRUGS (1)
  1. MICONAZOLE [Suspect]

REACTIONS (1)
  - INJURY ASPHYXIATION [None]
